FAERS Safety Report 18509597 (Version 2)
Quarter: 2020Q4

REPORT INFORMATION
  Report Type: Spontaneous
  Country: US (occurrence: US)
  Receive Date: 20201117
  Receipt Date: 20201124
  Transmission Date: 20210114
  Serious: No
  Sender: FDA-Public Use
  Company Number: US-TEVA-2020-US-1849950

PATIENT
  Age: 37 Year
  Sex: Female

DRUGS (2)
  1. TREPROSTINIL TEVA [Suspect]
     Active Substance: TREPROSTINIL
     Dosage: 50NG/KG/MIN, FREQUENCY: CONTINUOUS
     Route: 042
     Dates: start: 20200409
  2. TREPROSTINIL TEVA [Suspect]
     Active Substance: TREPROSTINIL
     Indication: PULMONARY ARTERIAL HYPERTENSION
     Dosage: 50NKM, FREQUENCY: CONTINUOUS
     Route: 042
     Dates: start: 20190711

REACTIONS (6)
  - Dizziness [Unknown]
  - Dyspnoea [Unknown]
  - Pain in extremity [Unknown]
  - Oxygen saturation decreased [Unknown]
  - Tremor [Unknown]
  - Headache [Unknown]

NARRATIVE: CASE EVENT DATE: 20201106
